FAERS Safety Report 12690003 (Version 2)
Quarter: 2016Q4

REPORT INFORMATION
  Report Type: Spontaneous
  Country: IT (occurrence: IT)
  Receive Date: 20160826
  Receipt Date: 20161228
  Transmission Date: 20170207
  Serious: Yes (Disabling, Other)
  Sender: FDA-Public Use
  Company Number: IT-PFIZER INC-2016399079

PATIENT
  Age: 60 Year
  Sex: Female

DRUGS (2)
  1. ZOLEDRONIC ACID [Suspect]
     Active Substance: ZOLEDRONIC ACID
     Indication: METASTASES TO BONE
     Dosage: 4 MG, MONTHLY
     Route: 042
     Dates: start: 20140901, end: 20150101
  2. DENOSUMAB [Suspect]
     Active Substance: DENOSUMAB
     Indication: METASTASES TO BONE
     Dosage: 120 MG, MONTHLY
     Dates: start: 20150102

REACTIONS (4)
  - Dental fistula [Recovering/Resolving]
  - Dysaesthesia [Recovering/Resolving]
  - Fistula [Recovering/Resolving]
  - Mouth swelling [Recovering/Resolving]

NARRATIVE: CASE EVENT DATE: 20151109
